FAERS Safety Report 10750539 (Version 1)
Quarter: 2015Q1

REPORT INFORMATION
  Report Type: Spontaneous
  Country: ES (occurrence: ES)
  Receive Date: 20150130
  Receipt Date: 20150130
  Transmission Date: 20150721
  Serious: Yes (Hospitalization, Other)
  Sender: FDA-Public Use
  Company Number: ES-009507513-1501ESP005539

PATIENT
  Age: 25 Year
  Sex: Female
  Weight: 59.6 kg

DRUGS (1)
  1. NUVARING [Suspect]
     Active Substance: ETHINYL ESTRADIOL\ETONOGESTREL
     Indication: ACNE
     Dosage: STRENGTH: ETONOGESTREL 0.120 MG/ETHINYL ESTRADIOL 0.015MG
     Route: 067
     Dates: start: 201411, end: 201412

REACTIONS (4)
  - Drug administration error [Unknown]
  - Pulmonary embolism [Recovered/Resolved]
  - Dilatation ventricular [Recovered/Resolved]
  - Tricuspid valve incompetence [Recovered/Resolved]

NARRATIVE: CASE EVENT DATE: 201411
